FAERS Safety Report 6174233-0 (Version None)
Quarter: 2009Q2

REPORT INFORMATION
  Report Type: 
  Country: None (occurrence: None)
  Receive Date: 20090430
  Receipt Date: 20080516
  Transmission Date: 20091009
  Serious: No
  Sender: FDA-Public Use
  Company Number: US-ASTRAZENECA-2008UW05633

PATIENT
  Age: 6 Year
  Sex: Female
  Weight: 35.4 kg

DRUGS (5)
  1. NEXIUM [Suspect]
     Indication: GASTROOESOPHAGEAL REFLUX DISEASE
     Route: 048
     Dates: start: 20080303
  2. NEXIUM [Suspect]
     Route: 048
  3. MIRALAX [Concomitant]
  4. PREVACID [Concomitant]
  5. ZEGERID [Concomitant]

REACTIONS (5)
  - ABDOMINAL PAIN [None]
  - CONSTIPATION [None]
  - RASH [None]
  - SWELLING FACE [None]
  - THROAT IRRITATION [None]
